FAERS Safety Report 9252861 (Version 1)
Quarter: 2013Q2

REPORT INFORMATION
  Report Type: Spontaneous
  Country: US (occurrence: US)
  Receive Date: 20130424
  Receipt Date: 20130424
  Transmission Date: 20140414
  Serious: No
  Sender: FDA-Public Use
  Company Number: US-009507513-1304USA014552

PATIENT
  Sex: Female
  Weight: 79.37 kg

DRUGS (3)
  1. NEXPLANON [Suspect]
     Indication: CONTRACEPTION
     Dosage: UNK
     Route: 059
     Dates: start: 20130207
  2. TOPAMAX [Concomitant]
  3. MAXALT [Concomitant]

REACTIONS (1)
  - Headache [Unknown]
